FAERS Safety Report 4897173-3 (Version None)
Quarter: 2006Q1

REPORT INFORMATION
  Report Type: 
  Country: None (occurrence: None)
  Receive Date: 20060127
  Receipt Date: 20060125
  Transmission Date: 20060701
  Serious: Yes (Other)
  Sender: FDA-Public Use
  Company Number: 2006S1000019

PATIENT
  Age: 1 Month
  Sex: Female

DRUGS (8)
  1. INOMAX [Suspect]
     Indication: LUNG DISORDER
     Dosage: 5 PPM; INH_GAS; INH; CONT
     Route: 055
     Dates: start: 20051225, end: 20060115
  2. INOMAX [Suspect]
     Indication: PROPHYLAXIS
     Dosage: 5 PPM; INH_GAS; INH; CONT
     Route: 055
     Dates: start: 20051225, end: 20060115
  3. CAFFEINE CITRATE (CAFFEINE CITRATE) [Concomitant]
  4. EPOGEN [Concomitant]
  5. INDOMETHACIN [Concomitant]
  6. CEFUROXIME [Concomitant]
  7. IRON (IRON) [Concomitant]
  8. VITAMIN D [Concomitant]

REACTIONS (2)
  - ANAEMIA NEONATAL [None]
  - PATENT DUCTUS ARTERIOSUS [None]
